FAERS Safety Report 4284362-4 (Version None)
Quarter: 2004Q1

REPORT INFORMATION
  Report Type: 
  Country: None (occurrence: None)
  Receive Date: 20040130
  Receipt Date: 20040130
  Transmission Date: 20041129
  Serious: Yes (Hospitalization)
  Sender: FDA-Public Use
  Company Number: None

PATIENT
  Age: 79 Year
  Sex: Male
  Weight: 55 kg

DRUGS (7)
  1. AGGRENOX [Suspect]
     Indication: CEREBROVASCULAR ACCIDENT
     Dosage: SEE IMAGE
  2. FOSINOPRIL SODIUM [Concomitant]
  3. HYDROCHLOROTHIAZIDE [Concomitant]
  4. METOPROLOL [Concomitant]
  5. SIMVASTATIN [Concomitant]
  6. BACTRIM [Concomitant]
  7. TERAZOSIN HCL [Concomitant]

REACTIONS (4)
  - ASTHENIA [None]
  - FAECES DISCOLOURED [None]
  - HAEMATEMESIS [None]
  - MENTAL STATUS CHANGES [None]
